FAERS Safety Report 8277442-X (Version None)
Quarter: 2012Q2

REPORT INFORMATION
  Report Type: 
  Country: None (occurrence: None)
  Receive Date: 20120412
  Receipt Date: 20120402
  Transmission Date: 20120825
  Serious: Yes (Hospitalization)
  Sender: FDA-Public Use
  Company Number: NL-PFIZER INC-2012039132

PATIENT
  Age: 57 Year
  Sex: Female
  Weight: 72 kg

DRUGS (11)
  1. EXEMESTANE [Suspect]
     Indication: BREAST CANCER
     Dosage: 25 MG, 1X/DAY
     Route: 048
     Dates: start: 20100819
  2. CARVEDILOL [Concomitant]
  3. PAROXETINE [Concomitant]
  4. PERINDOPRIL [Concomitant]
  5. SLOW-K [Concomitant]
  6. BECLOMETHASONE DIPROPIONATE [Concomitant]
  7. BUMETANIDE [Concomitant]
  8. EPLERENONE [Concomitant]
  9. SPIRIVA [Concomitant]
  10. DIGOXIN [Concomitant]
  11. ACENOCOUMAROL [Concomitant]

REACTIONS (4)
  - PNEUMONIA [None]
  - PYELONEPHRITIS [None]
  - UVEITIS [None]
  - RESPIRATORY TRACT INFECTION [None]
